FAERS Safety Report 9524042 (Version 1)
Quarter: 2013Q1

REPORT INFORMATION
  Report Type: Spontaneous
  Country: US (occurrence: None)
  Receive Date: 20130313
  Receipt Date: 20130313
  Transmission Date: 20140127
  Serious: No
  Sender: FDA-Public Use
  Company Number: 1000040865

PATIENT
  Age: 69 Year
  Sex: Female

DRUGS (9)
  1. SAVELLA (MILNACIPRAN HYDROCHLORIDE) (12.5 MILLIGRAM, TABLETS) [Suspect]
     Indication: FIBROMYALGIA
     Dosage: 12.5 MG, 1 IN 1 D, ORAL
     Route: 048
     Dates: start: 201211, end: 201211
  2. SAVELLA (MILNACIPRAN HYDROCHLORIDE) (TABLETS) [Suspect]
     Indication: FIBROMYALGIA
     Dosage: 25 MG BID (25 MG, 2 IN 1 D), ORAL
     Route: 048
     Dates: start: 2012, end: 20121205
  3. PROPRANOLOL [Concomitant]
  4. GLIPIZIDE [Concomitant]
  5. METFORMIN [Concomitant]
  6. FUROSEMIDE [Concomitant]
  7. KLOR-CON M10 (POTASIUM CHLORIDE) [Concomitant]
  8. CALCIUM [Concomitant]
  9. VITAMIN D3 (COLECALCIFEROL) [Concomitant]

REACTIONS (2)
  - Nausea [None]
  - Vomiting [None]
